FAERS Safety Report 20491288 (Version 1)
Quarter: 2022Q1

REPORT INFORMATION
  Report Type: Spontaneous
  Country: HR (occurrence: HR)
  Receive Date: 20220218
  Receipt Date: 20220218
  Transmission Date: 20220423
  Serious: Yes (Other)
  Sender: FDA-Public Use
  Company Number: HR-NOVARTISPH-NVSC2022HR037460

PATIENT
  Age: 62 Year
  Sex: Male

DRUGS (2)
  1. ENTRESTO [Suspect]
     Active Substance: SACUBITRIL\VALSARTAN
     Indication: Ischaemic cardiomyopathy
     Dosage: 100 MG, BID (49/51MG)DOSE INCREASED
     Route: 065
     Dates: start: 202101, end: 202103
  2. ENTRESTO [Suspect]
     Active Substance: SACUBITRIL\VALSARTAN
     Indication: Ejection fraction
     Dosage: 200 MG, BID (97/103 MG)
     Route: 065
     Dates: start: 202103

REACTIONS (3)
  - Renal impairment [Recovered/Resolved]
  - Blood creatinine increased [Recovered/Resolved]
  - Product use in unapproved indication [Unknown]

NARRATIVE: CASE EVENT DATE: 20210301
